FAERS Safety Report 4978384-5 (Version None)
Quarter: 2006Q2

REPORT INFORMATION
  Report Type: 
  Country: None (occurrence: None)
  Receive Date: 20060417
  Receipt Date: 20060405
  Transmission Date: 20061013
  Serious: Yes (Hospitalization, Other)
  Sender: FDA-Public Use
  Company Number: HQWYE678606APR06

PATIENT
  Age: 40 Year
  Sex: Female

DRUGS (7)
  1. EFFEXOR [Suspect]
     Indication: ANXIETY
     Dosage: 225 MG 1X PER 1 DAY ORAL
     Route: 048
     Dates: start: 19960101, end: 20060301
  2. EFFEXOR [Suspect]
     Indication: DEPRESSION
     Dosage: 225 MG 1X PER 1 DAY ORAL
     Route: 048
     Dates: start: 19960101, end: 20060301
  3. LIPITOR [Concomitant]
  4. ATENOLOL [Concomitant]
  5. FISH OIL, HYDROGENATED (FISH OIL, HYDROGENATED) [Concomitant]
  6. MAGNESIUM (MAGNESIUM) [Concomitant]
  7. NIACIN [Concomitant]

REACTIONS (9)
  - BALANCE DISORDER [None]
  - CRYING [None]
  - DEPRESSION [None]
  - EMOTIONAL DISORDER [None]
  - HYPOAESTHESIA [None]
  - PANIC DISORDER [None]
  - PARAESTHESIA [None]
  - STRESS [None]
  - TREMOR [None]
